FAERS Safety Report 7549924-7 (Version None)
Quarter: 2011Q2

REPORT INFORMATION
  Report Type: 
  Country: None (occurrence: None)
  Receive Date: 20110615
  Receipt Date: 20110610
  Transmission Date: 20111010
  Serious: Yes (Death, Other)
  Sender: FDA-Public Use
  Company Number: PHHY2011US51484

PATIENT
  Age: 63 Year
  Sex: Male

DRUGS (28)
  1. VORICONAZOLE [Suspect]
     Dosage: 4 MG/KG, BID
     Route: 042
  2. PREDNISOLONE [Suspect]
     Dosage: UNK
  3. VINCRISTINE [Suspect]
     Dosage: UNK
  4. COTRIM [Suspect]
     Dosage: UNK
  5. METRONIDAZOLE [Suspect]
     Dosage: UNK
     Route: 042
  6. RITUXIMAB [Suspect]
     Dosage: UNK
  7. CAMPATH [Suspect]
     Dosage: 10 MG, UNK
  8. PREDNISOLONE [Suspect]
     Dosage: UNK
  9. DACLIZUMAB [Suspect]
     Dosage: 1 MG/KG, UNK
  10. PENTAMIDINE ISETHIONATE [Suspect]
     Dosage: 4 MG/KG, UNK
     Route: 042
  11. FLUCYTOSINE [Suspect]
     Dosage: 25 MG/KG, QID
  12. ETOPOSIDE [Suspect]
     Dosage: UNK
  13. TACROLIMUS [Suspect]
     Route: 041
  14. CAMPATH [Suspect]
     Dosage: 30 MG, UNK
  15. MYCOPHENOLATE MEFETIL [Suspect]
     Dosage: 1000 MG, TID
     Route: 048
  16. PENTAMIDINE ISETHIONATE [Suspect]
     Dosage: UNK
  17. AMPHOTERICIN B [Suspect]
     Dosage: 5 MG/KG, UNK
  18. CASPOFUNGIN ACETATE [Suspect]
     Dosage: 50 MG, UNK
     Route: 042
  19. FLUCONAZOLE [Suspect]
     Dosage: UNK
  20. MILTEFOSINE [Suspect]
     Dosage: 150 MG, UNK
     Route: 048
  21. METHYLPREDNISOLONE [Suspect]
     Indication: ACUTE GRAFT VERSUS HOST DISEASE
     Dosage: 2 MG/KG, UNK
     Route: 042
  22. ACYCLOVIR [Suspect]
     Dosage: UNK
  23. KETOCONAZOLE [Suspect]
     Dosage: 2 %, UNK
     Route: 061
  24. CYCLOPHOSPHAMIDE [Suspect]
     Dosage: UNK
  25. VORICONAZOLE [Suspect]
     Dosage: UNK
  26. DOXORUBICIN HCL [Suspect]
     Dosage: UNK
  27. RITUXIMAB [Suspect]
     Dosage: 375 MG/M2, UNK
  28. CAMPATH [Suspect]
     Dosage: 3 MG, UNK

REACTIONS (16)
  - CENTRAL NERVOUS SYSTEM LESION [None]
  - LEUKOPENIA [None]
  - ACUTE GRAFT VERSUS HOST DISEASE [None]
  - RASH MORBILLIFORM [None]
  - MENTAL DISORDER [None]
  - RASH PUSTULAR [None]
  - PSEUDOMONAL SEPSIS [None]
  - TRANSAMINASES INCREASED [None]
  - DIARRHOEA [None]
  - FREQUENT BOWEL MOVEMENTS [None]
  - RASH [None]
  - SKIN ULCER [None]
  - NEURODEGENERATIVE DISORDER [None]
  - ACANTHAMOEBA INFECTION [None]
  - SINUSITIS [None]
  - SUBCUTANEOUS NODULE [None]
